FAERS Safety Report 20624545 (Version 1)
Quarter: 2022Q1

REPORT INFORMATION
  Report Type: Spontaneous
  Country: CN (occurrence: CN)
  Receive Date: 20220322
  Receipt Date: 20220322
  Transmission Date: 20220424
  Serious: Yes (Other)
  Sender: FDA-Public Use
  Company Number: CN-BAXTER-2022BAX006150

PATIENT
  Age: 59 Year
  Sex: Female
  Weight: 50 kg

DRUGS (4)
  1. CYCLOPHOSPHAMIDE [Suspect]
     Active Substance: CYCLOPHOSPHAMIDE
     Indication: Breast cancer female
     Dosage: CYCLOPHOSPHAMIDE FOR INJECTION (ENDOXAN CTX) 820 MG DILUTED WITH NS 45ML.
     Route: 042
     Dates: start: 20220111, end: 20220111
  2. SODIUM CHLORIDE [Suspect]
     Active Substance: SODIUM CHLORIDE
     Indication: Medication dilution
     Dosage: CYCLOPHOSPHAMIDE FOR INJECTION (ENDOXAN CTX) 820 MG DILUTED WITH NS 45ML.
     Route: 042
     Dates: start: 20220111, end: 20220111
  3. SODIUM CHLORIDE [Suspect]
     Active Substance: SODIUM CHLORIDE
     Dosage: EPIRUBICIN HYDROCHLORIDE INJECTION (PHARMORUBICIN) 120 MG DILUTED WITH NS 100ML.
     Route: 042
     Dates: start: 20220111, end: 20220111
  4. EPIRUBICIN [Suspect]
     Active Substance: EPIRUBICIN
     Indication: Breast cancer female
     Route: 041
     Dates: start: 20220111, end: 20220111

REACTIONS (2)
  - White blood cell count decreased [Recovered/Resolved]
  - Agranulocytosis [Recovered/Resolved]

NARRATIVE: CASE EVENT DATE: 20220124
